FAERS Safety Report 9591646 (Version 1)
Quarter: 2013Q4

REPORT INFORMATION
  Report Type: Spontaneous
  Country: US (occurrence: US)
  Receive Date: 20131003
  Receipt Date: 20131003
  Transmission Date: 20140711
  Serious: No
  Sender: FDA-Public Use
  Company Number: US-AMGEN-USASP2012082288

PATIENT
  Age: 62 Year
  Sex: Female

DRUGS (1)
  1. ENBREL [Suspect]
     Indication: PSORIASIS
     Dosage: 50 MG BIWEEKLY, UNK
     Dates: start: 20120920

REACTIONS (3)
  - Sciatica [Recovered/Resolved]
  - Arthritis [Recovered/Resolved]
  - Groin pain [Recovered/Resolved]
